FAERS Safety Report 18151616 (Version 1)
Quarter: 2020Q3

REPORT INFORMATION
  Report Type: Spontaneous
  Country: NL (occurrence: NL)
  Receive Date: 20200814
  Receipt Date: 20200814
  Transmission Date: 20201103
  Serious: Yes (Other)
  Sender: FDA-Public Use
  Company Number: NL-SA-2020SA203077

PATIENT

DRUGS (3)
  1. ALEMTUZUMAB [Suspect]
     Active Substance: ALEMTUZUMAB
     Indication: KIDNEY TRANSPLANT REJECTION
     Dosage: 30 MG, SUBCUTANEOUSLY ON TWO CONSECUTIVE DAYS
     Route: 058
  2. METHYLPREDNISOLONE. [Concomitant]
     Active Substance: METHYLPREDNISOLONE
     Indication: KIDNEY TRANSPLANT REJECTION
     Dosage: TOTAL DOSE 3000 MG
  3. IMMUNOGLOBULIN I.V [Concomitant]
     Active Substance: HUMAN IMMUNOGLOBULIN G
     Indication: KIDNEY TRANSPLANT REJECTION
     Dosage: 2 G/KG
     Route: 042

REACTIONS (7)
  - Pain [Recovered/Resolved]
  - Off label use [Recovered/Resolved]
  - Joint range of motion decreased [Recovered/Resolved]
  - Increased tendency to bruise [Recovered/Resolved]
  - Haematoma [Recovered/Resolved]
  - Acquired haemophilia [Recovered/Resolved]
  - Haemorrhage [Recovered/Resolved]
